FAERS Safety Report 12956481 (Version 1)
Quarter: 2016Q4

REPORT INFORMATION
  Report Type: Spontaneous
  Country: US (occurrence: US)
  Receive Date: 20161119
  Receipt Date: 20161119
  Transmission Date: 20170207
  Serious: No
  Sender: FDA-Public Use
  Company Number: US-AMPHASTAR PHARMACEUTICALS, INC.-1059790

PATIENT
  Age: 77 Year
  Sex: Male
  Weight: 70 kg

DRUGS (6)
  1. ENOXAPARIN SODIUM. [Suspect]
     Active Substance: ENOXAPARIN SODIUM
     Indication: DEEP VEIN THROMBOSIS
     Route: 058
  2. ATENOLOL. [Concomitant]
     Active Substance: ATENOLOL
  3. DIGOXIN. [Concomitant]
     Active Substance: DIGOXIN
  4. LIPITOR [Concomitant]
     Active Substance: ATORVASTATIN CALCIUM
  5. ENOXAPARIN SODIUM. [Suspect]
     Active Substance: ENOXAPARIN SODIUM
     Indication: PULMONARY EMBOLISM
     Route: 058
  6. ENOXAPARIN SODIUM. [Suspect]
     Active Substance: ENOXAPARIN SODIUM
     Indication: HYPERCOAGULATION
     Route: 058

REACTIONS (2)
  - Haematoma [Not Recovered/Not Resolved]
  - Product packaging quantity issue [None]

NARRATIVE: CASE EVENT DATE: 201601
